FAERS Safety Report 7279977-5 (Version None)
Quarter: 2011Q1

REPORT INFORMATION
  Report Type: 
  Country: None (occurrence: None)
  Receive Date: 20110208
  Receipt Date: 20110202
  Transmission Date: 20110831
  Serious: Yes (Other)
  Sender: FDA-Public Use
  Company Number: IE-PFIZER INC-2011024905

PATIENT
  Age: 74 Year
  Sex: Male

DRUGS (1)
  1. RAPAMUNE [Suspect]
     Dosage: 2 MG, 1X/DAY
     Dates: start: 20100301

REACTIONS (1)
  - DRUG LEVEL INCREASED [None]
